FAERS Safety Report 15962150 (Version 1)
Quarter: 2019Q1

REPORT INFORMATION
  Report Type: Spontaneous
  Country: US (occurrence: US)
  Receive Date: 20190123
  Receipt Date: 20190123
  Transmission Date: 20190417
  Serious: No
  Sender: FDA-Public Use
  Company Number: None

PATIENT
  Age: 63 Year
  Sex: Female

DRUGS (11)
  1. MULTIVITAMIN [Concomitant]
     Active Substance: VITAMINS
  2. METOPROLOL. [Concomitant]
     Active Substance: METOPROLOL
  3. LORATADINE. [Concomitant]
     Active Substance: LORATADINE
  4. MYCOPHENOLATE 500 MG TABS [Suspect]
     Active Substance: MYCOPHENOLIC ACID
     Indication: TRANSPLANT
     Route: 048
     Dates: start: 20180713
  5. SMZ-TMP [Concomitant]
     Active Substance: SULFAMETHOXAZOLE\TRIMETHOPRIM
  6. PREDNISONE. [Concomitant]
     Active Substance: PREDNISONE
  7. VITAMIN 1000K [Concomitant]
  8. HUMALOG KWIK [Concomitant]
  9. NEXIUM [Concomitant]
     Active Substance: ESOMEPRAZOLE MAGNESIUM
  10. TACROLIMUS 0.5 MG CAPS [Suspect]
     Active Substance: TACROLIMUS
     Indication: TRANSPLANT
     Dosage: 1 MG IN AM 1.5 MG IN EVEING
     Route: 048
     Dates: start: 20180713
  11. FLONASE NS [Concomitant]

REACTIONS (4)
  - Hypertension [None]
  - Hospitalisation [None]
  - Alopecia [None]
  - Somnolence [None]
